FAERS Safety Report 8685716 (Version 3)
Quarter: 2013Q2

REPORT INFORMATION
  Report Type: Report from Study
  Country: BR (occurrence: BR)
  Receive Date: 20120726
  Receipt Date: 20130506
  Transmission Date: 20140414
  Serious: Yes (Hospitalization)
  Sender: FDA-Public Use
  Company Number: BR-ROCHE-1016783

PATIENT
  Sex: Female
  Weight: 72 kg

DRUGS (12)
  1. MABTHERA [Suspect]
     Indication: RHEUMATOID ARTHRITIS
     Dosage: DOSE, FORM AND FREQUENCY: NOT REPORTED
     Route: 042
     Dates: start: 200907, end: 20120715
  2. MABTHERA [Suspect]
     Dosage: DOSE, FORM AND FREQUENCY: NOT REPORTED
     Route: 042
     Dates: start: 201106
  3. MABTHERA [Suspect]
     Route: 042
     Dates: start: 20100701, end: 20110615
  4. SELOZOK [Concomitant]
     Route: 065
  5. ATACAND [Concomitant]
     Indication: BLOOD PRESSURE
     Route: 065
  6. GALVUS MET [Concomitant]
     Indication: DIABETES MELLITUS
     Dosage: DOSE: 850/50 MG
     Route: 065
  7. METHOTREXATE [Concomitant]
     Route: 065
  8. RIVOTRIL [Concomitant]
     Route: 065
  9. PERIDAL [Concomitant]
     Indication: RHEUMATOID ARTHRITIS
  10. MECLIN [Concomitant]
  11. AMARYL [Concomitant]
     Indication: DIABETES MELLITUS
  12. NOCTAL (BRAZIL) [Concomitant]
     Route: 065

REACTIONS (10)
  - Spinal disorder [Unknown]
  - Labyrinthitis [Unknown]
  - Arthralgia [Recovering/Resolving]
  - Gallbladder disorder [Unknown]
  - Musculoskeletal disorder [Unknown]
  - Back pain [Not Recovered/Not Resolved]
  - Pain in extremity [Recovering/Resolving]
  - Osteoarthritis [Not Recovered/Not Resolved]
  - Dizziness [Unknown]
  - Gait disturbance [Unknown]
